FAERS Safety Report 13897304 (Version 2)
Quarter: 2017Q3

REPORT INFORMATION
  Report Type: Spontaneous
  Country: US (occurrence: US)
  Receive Date: 20170823
  Receipt Date: 20170908
  Transmission Date: 20171127
  Serious: Yes (Hospitalization)
  Sender: FDA-Public Use
  Company Number: US-BAYER-2017-160721

PATIENT
  Sex: Female

DRUGS (4)
  1. TYLENOL WITH CODEINE [Concomitant]
     Active Substance: ACETAMINOPHEN\CODEINE PHOSPHATE
     Indication: MIGRAINE
  2. IBUPROFEN. [Concomitant]
     Active Substance: IBUPROFEN
     Indication: MIGRAINE
  3. ADVIL [Concomitant]
     Active Substance: IBUPROFEN
     Indication: MIGRAINE
  4. MIRENA [Suspect]
     Active Substance: LEVONORGESTREL
     Indication: CONTRACEPTION
     Dosage: 20 MCG/24HR, CONT
     Route: 015
     Dates: start: 20090323, end: 20141030

REACTIONS (10)
  - Anxiety [None]
  - Dysmenorrhoea [None]
  - Pelvic pain [None]
  - Dyspareunia [None]
  - Vaginal infection [None]
  - Genital haemorrhage [None]
  - Cervical spinal stenosis [None]
  - Vaginal discharge [None]
  - Uterine perforation [None]
  - Depression [None]

NARRATIVE: CASE EVENT DATE: 2014
